FAERS Safety Report 9515562 (Version 1)
Quarter: 2013Q1

REPORT INFORMATION
  Report Type: Spontaneous
  Country: US (occurrence: None)
  Receive Date: 20130305
  Receipt Date: 20130305
  Transmission Date: 20140127
  Serious: Yes (Other)
  Sender: FDA-Public Use
  Company Number: 163-21880-12112602

PATIENT
  Age: 71 Year
  Sex: Male
  Weight: 74.84 kg

DRUGS (9)
  1. REVLIMID (LENALIDOMIDE) (25 MILLIGRAM, CAPSULES) [Suspect]
     Indication: PLASMA CELL MYELOMA
     Dosage: 25 MG, 1 IN 1 D, PO
     Route: 048
     Dates: start: 20090603
  2. ACYCLOVIR (ACICLOVIR) (CAPSULES) [Concomitant]
  3. ASPIRIN (ACETYLSALICYLIC ACID) (CHEWABLE TABLET) [Concomitant]
  4. CALCIUM (CALCIUM) (UNKNOWN) [Concomitant]
  5. DIOVAN (VALSARTAN) (TABLETS) [Concomitant]
  6. HYDROCHLOROTHIAZIDE (HYDROCHLOROTHIAZIDE) (UNKNOWN) [Concomitant]
  7. MAGNESIUM (MAGNESIUM) (UNKNOWN) [Concomitant]
  8. MULTIVITAMINS (MULTIVIITAMINS) (UNKNOWN) [Concomitant]
  9. VITAMIN D3 (COLECALCIFEROL) (UNKNOWN) [Concomitant]

REACTIONS (1)
  - Blood pressure increased [None]
